FAERS Safety Report 19947232 (Version 1)
Quarter: 2021Q4

REPORT INFORMATION
  Report Type: Spontaneous
  Country: US (occurrence: US)
  Receive Date: 20211012
  Receipt Date: 20211012
  Transmission Date: 20220304
  Serious: Yes (Other)
  Sender: FDA-Public Use
  Company Number: 2021A765560

PATIENT
  Sex: Male

DRUGS (7)
  1. OLAPARIB [Suspect]
     Active Substance: OLAPARIB
     Route: 048
  2. ZYTIGA [Suspect]
     Active Substance: ABIRATERONE ACETATE
  3. DOCETAXEL [Suspect]
     Active Substance: DOCETAXEL
  4. CABAZITAXEL [Suspect]
     Active Substance: CABAZITAXEL
  5. CARBOPLATIN [Suspect]
     Active Substance: CARBOPLATIN
  6. ENZALUTAMIDE [Suspect]
     Active Substance: ENZALUTAMIDE
  7. MITOXANTRONE [Suspect]
     Active Substance: MITOXANTRONE HYDROCHLORIDE

REACTIONS (2)
  - Malignant neoplasm progression [Unknown]
  - Metastases to bone [Unknown]
